FAERS Safety Report 9001058 (Version 1)
Quarter: 2013Q1

REPORT INFORMATION
  Report Type: Spontaneous
  Country: US (occurrence: None)
  Receive Date: 20121226
  Receipt Date: 20121228
  Transmission Date: 20140127
  Serious: Yes (Hospitalization, Disabling, Other)
  Sender: FDA-Public Use
  Company Number: ACO_33416_2012

PATIENT
  Age: 67 Year
  Sex: Female

DRUGS (9)
  1. AMPYRA (DALFAMPRIDINE) TABLET, 10MG [Suspect]
     Indication: PRODUCT USED FOR UNKNOWN INDICATION
     Dates: start: 201208, end: 201212
  2. COSOPT (DORZOLAMIDE HYDROCHLORIDE, TIMOLOL MALEATE) [Concomitant]
  3. RESTASIS (CICLOSPORIN) [Concomitant]
  4. TRAVATAN Z (TRAVOPROST) [Concomitant]
  5. LAMICTAL (LAMOTRIGINE) TABLET [Concomitant]
  6. NEXIUM (ESOMEPRAZOLE SODIUM) [Concomitant]
  7. HYDROCODONE/ACETAMINOPHEN (HYDROCODONE, PARACETAMOL) [Concomitant]
  8. MIRAPEX (PRAMIPEXOLE DIHYDROCHLORIDE) [Concomitant]
  9. TOPAMAX (TOPIRAMATE) [Concomitant]

REACTIONS (15)
  - Renal failure [None]
  - Sepsis [None]
  - Pneumonia [None]
  - Appendicitis perforated [None]
  - Abasia [None]
  - Movement disorder [None]
  - Dysarthria [None]
  - Diarrhoea [None]
  - Blood potassium decreased [None]
  - White blood cell count increased [None]
  - Mental impairment [None]
  - Dry mouth [None]
  - Dry eye [None]
  - Fall [None]
  - Urinary tract infection [None]
